FAERS Safety Report 6096029-0 (Version None)
Quarter: 2009Q1

REPORT INFORMATION
  Report Type: 
  Country: None (occurrence: None)
  Receive Date: 20090227
  Receipt Date: 20081013
  Transmission Date: 20090719
  Serious: No
  Sender: FDA-Public Use
  Company Number: A0742435A

PATIENT
  Age: 46 Year
  Sex: Female
  Weight: 74.1 kg

DRUGS (2)
  1. LAMICTAL [Suspect]
     Indication: DEPRESSION
     Dosage: 50MG PER DAY
     Route: 048
     Dates: start: 20080701
  2. PREMPHASE 14/14 [Concomitant]

REACTIONS (1)
  - RASH [None]
